FAERS Safety Report 10308275 (Version 6)
Quarter: 2015Q2

REPORT INFORMATION
  Report Type: Spontaneous
  Country: US (occurrence: US)
  Receive Date: 20140716
  Receipt Date: 20150408
  Transmission Date: 20150821
  Serious: Yes (Other)
  Sender: FDA-Public Use
  Company Number: US-009507513-1406USA009260

PATIENT
  Sex: Female
  Weight: 63.39 kg

DRUGS (1)
  1. IMPLANON [Suspect]
     Active Substance: ETONOGESTREL
     Indication: CONTRACEPTION
     Dosage: UNK
     Route: 030
     Dates: start: 20110406, end: 20150211

REACTIONS (12)
  - Dysmenorrhoea [Unknown]
  - Dizziness [Unknown]
  - Complication of device removal [Recovered/Resolved]
  - Asthenia [Unknown]
  - Medical device complication [Recovered/Resolved]
  - Incorrect drug administration duration [Recovered/Resolved]
  - Incorrect route of drug administration [Recovered/Resolved]
  - Surgery [Recovering/Resolving]
  - Medical device complication [Recovered/Resolved]
  - Menometrorrhagia [Unknown]
  - Feeling abnormal [Unknown]
  - General anaesthesia [Recovering/Resolving]

NARRATIVE: CASE EVENT DATE: 201104
